FAERS Safety Report 14911371 (Version 1)
Quarter: 2018Q2

REPORT INFORMATION
  Report Type: Spontaneous
  Country: TW (occurrence: TW)
  Receive Date: 20180518
  Receipt Date: 20180518
  Transmission Date: 20180711
  Serious: Yes (Other)
  Sender: FDA-Public Use
  Company Number: TW-ROCHE-2121964

PATIENT
  Age: 55 Year
  Sex: Female

DRUGS (1)
  1. RITUXIMAB. [Suspect]
     Active Substance: RITUXIMAB
     Indication: IMMUNE TOLERANCE INDUCTION
     Dosage: 375 MG/BSA, SINGLE DOSE THERAPY
     Route: 042
     Dates: start: 20170419, end: 20170419

REACTIONS (4)
  - Intentional product use issue [Unknown]
  - Vasculitis [Unknown]
  - Transplant rejection [Unknown]
  - Off label use [Unknown]

NARRATIVE: CASE EVENT DATE: 20170419
